FAERS Safety Report 10529168 (Version 2)
Quarter: 2016Q4

REPORT INFORMATION
  Report Type: Spontaneous
  Country: IT (occurrence: IT)
  Receive Date: 20141020
  Receipt Date: 20161214
  Transmission Date: 20170206
  Serious: Yes (Hospitalization, Other)
  Sender: FDA-Public Use
  Company Number: IT-GILEAD-2014-0118638

PATIENT
  Age: 54 Year
  Sex: Male

DRUGS (7)
  1. DARUNAVIR W/RITONAVIR [Interacting]
     Active Substance: DARUNAVIR\RITONAVIR
     Indication: HIV INFECTION
     Dosage: 800/100MG
     Route: 048
     Dates: start: 201209
  2. COTRIMOXAZOLE [Interacting]
     Active Substance: SULFAMETHOXAZOLE\TRIMETHOPRIM
     Indication: OPPORTUNISTIC INFECTION PROPHYLAXIS
     Dosage: UNK
     Route: 065
     Dates: start: 201209
  3. RALTEGRAVIR. [Interacting]
     Active Substance: RALTEGRAVIR
     Indication: ANTIRETROVIRAL THERAPY
     Dosage: 100 MG, QD
     Route: 065
  4. AZITROMYCIN [Interacting]
     Active Substance: AZITHROMYCIN ANHYDROUS
     Indication: OPPORTUNISTIC INFECTION PROPHYLAXIS
     Dosage: UNK
     Route: 065
     Dates: start: 201209
  5. INDOMETHACIN                       /00003801/ [Interacting]
     Active Substance: INDOMETHACIN
     Indication: PERICARDITIS
     Dosage: 50 MG, TID
     Route: 065
  6. TRUVADA [Suspect]
     Active Substance: EMTRICITABINE\TENOFOVIR DISOPROXIL FUMARATE
     Indication: ANTIRETROVIRAL THERAPY
     Dosage: 1000 MG, UNK
     Route: 065
     Dates: start: 201209
  7. LAMIVUDINE. [Interacting]
     Active Substance: LAMIVUDINE
     Indication: ANTIRETROVIRAL THERAPY
     Route: 065

REACTIONS (3)
  - Hepatitis cholestatic [Not Recovered/Not Resolved]
  - Drug interaction [Unknown]
  - Acute kidney injury [Not Recovered/Not Resolved]
